FAERS Safety Report 16834273 (Version 1)
Quarter: 2019Q3

REPORT INFORMATION
  Report Type: Spontaneous
  Country: US (occurrence: US)
  Receive Date: 20190920
  Receipt Date: 20190920
  Transmission Date: 20191005
  Serious: Yes (Other)
  Sender: FDA-Public Use
  Company Number: US-PFIZER INC-2019401940

PATIENT
  Age: 59 Year
  Sex: Female
  Weight: 63.49 kg

DRUGS (6)
  1. IBRANCE [Suspect]
     Active Substance: PALBOCICLIB
     Indication: BREAST CANCER METASTATIC
     Dosage: 125 MG, CYCLIC (DAILY FOR 21 OUT OF 28 DAY)
     Route: 048
     Dates: start: 20190611
  2. CALCIUM [Concomitant]
     Active Substance: CALCIUM
     Dosage: UNK
  3. GLUCOSAMINE [Concomitant]
     Active Substance: GLUCOSAMINE
     Dosage: UNK
  4. EXEMESTANE. [Concomitant]
     Active Substance: EXEMESTANE
     Dosage: UNK
  5. TURMERIC [CURCUMA LONGA] [Concomitant]
     Dosage: UNK
  6. CHONDROITIN [Concomitant]
     Active Substance: CHONDROITIN
     Dosage: UNK

REACTIONS (2)
  - Neuropathy peripheral [Not Recovered/Not Resolved]
  - Diarrhoea [Recovering/Resolving]

NARRATIVE: CASE EVENT DATE: 20190913
